FAERS Safety Report 4848466-7 (Version None)
Quarter: 2005Q4

REPORT INFORMATION
  Report Type: 
  Country: None (occurrence: None)
  Receive Date: 20051208
  Receipt Date: 20050706
  Transmission Date: 20060501
  Serious: Yes (Hospitalization)
  Sender: FDA-Public Use
  Company Number: US-MERCK-0507USA01027

PATIENT
  Age: 70 Year
  Sex: Male
  Weight: 95 kg

DRUGS (6)
  1. VIOXX [Suspect]
     Indication: RHEUMATOID ARTHRITIS
     Route: 048
     Dates: start: 19990601, end: 20040501
  2. PREDNISONE [Concomitant]
     Route: 065
  3. METHOTREXATE [Concomitant]
     Route: 065
  4. ULTRAM [Concomitant]
     Route: 065
  5. CELEXA [Concomitant]
     Route: 065
  6. CEPHALEXIN [Concomitant]
     Indication: WOUND
     Route: 065

REACTIONS (12)
  - ARTHROPATHY [None]
  - BACK DISORDER [None]
  - BLOOD PRESSURE SYSTOLIC INCREASED [None]
  - CARDIAC MURMUR [None]
  - CAROTID BRUIT [None]
  - CEREBRAL INFARCTION [None]
  - CEREBROVASCULAR ACCIDENT [None]
  - DEPRESSION [None]
  - EMBOLIC STROKE [None]
  - PERICARDITIS [None]
  - THROMBOTIC STROKE [None]
  - VERTEBRAL ARTERY OCCLUSION [None]
